FAERS Safety Report 5104551-6 (Version None)
Quarter: 2006Q3

REPORT INFORMATION
  Report Type: 
  Country: None (occurrence: None)
  Receive Date: 20060908
  Receipt Date: 20060908
  Transmission Date: 20061208
  Serious: Yes (Hospitalization)
  Sender: FDA-Public Use
  Company Number: None

PATIENT
  Age: 73 Year
  Sex: Male
  Weight: 80.2867 kg

DRUGS (8)
  1. ERTAPENEM 1 GM [Suspect]
     Indication: PROPHYLAXIS
     Dosage: 1 GM DAILY IV
     Route: 042
     Dates: start: 20060830, end: 20060831
  2. ERTAPENEM 1 GM [Suspect]
     Indication: SURGERY
     Dosage: 1 GM DAILY IV
     Route: 042
     Dates: start: 20060830, end: 20060831
  3. CEFAZOLIN [Suspect]
     Indication: PROPHYLAXIS
     Dosage: 2 GM Q8 H IV
     Route: 042
     Dates: start: 20060804, end: 20060805
  4. CEFAZOLIN [Suspect]
     Indication: SURGERY
     Dosage: 2 GM Q8 H IV
     Route: 042
     Dates: start: 20060804, end: 20060805
  5. LEVETIRACETAM [Concomitant]
  6. MORPHINE [Concomitant]
  7. PANTOPRAZOLE SODIUM [Concomitant]
  8. GABAPENTIN [Concomitant]

REACTIONS (1)
  - CLOSTRIDIAL INFECTION [None]
